FAERS Safety Report 26102218 (Version 1)
Quarter: 2025Q4

REPORT INFORMATION
  Report Type: Spontaneous
  Country: EU (occurrence: EU)
  Receive Date: 20251128
  Receipt Date: 20251128
  Transmission Date: 20260118
  Serious: Yes (Hospitalization, Other)
  Sender: BAUSCH AND LOMB
  Company Number: EU-BIOVITRUM-2025-FR-015972

PATIENT
  Age: 5 Year
  Sex: Female
  Weight: 29 kg

DRUGS (7)
  1. DEXAMETHASONE [Suspect]
     Active Substance: DEXAMETHASONE
     Indication: Acute lymphocytic leukaemia
     Dosage: EVERY 12 HOURS
     Route: 065
     Dates: start: 20251112
  2. GAMIFANT [Suspect]
     Active Substance: EMAPALUMAB-LZSG
     Indication: Haemophagocytic lymphohistiocytosis
     Dosage: 5 MG/ML, INJECTABLE SOLUTION FOR INFUSION
     Route: 065
  3. KINERET [Suspect]
     Active Substance: ANAKINRA
     Indication: Acute lymphocytic leukaemia
     Dosage: EVERY 6 HOURS
     Route: 042
     Dates: start: 20251112
  4. TOCILIZUMAB [Suspect]
     Active Substance: TOCILIZUMAB
     Indication: Acute lymphocytic leukaemia
     Dosage: SECOND DOSE (12 HOURS LATER)
     Route: 065
     Dates: start: 20251109
  5. TOCILIZUMAB [Suspect]
     Active Substance: TOCILIZUMAB
     Dosage: FIRST DOSE
     Route: 065
     Dates: start: 20251109
  6. METHYLPREDNISOLONE [Suspect]
     Active Substance: METHYLPREDNISOLONE
     Indication: Acute lymphocytic leukaemia
     Route: 065
     Dates: start: 20251109
  7. METHYLPREDNISOLONE [Suspect]
     Active Substance: METHYLPREDNISOLONE
     Route: 065
     Dates: start: 20251111

REACTIONS (7)
  - Haemophagocytic lymphohistiocytosis [Unknown]
  - Haemodynamic instability [Unknown]
  - Hypernatraemia [Unknown]
  - Abdominal pain [Unknown]
  - Disseminated intravascular coagulation [Unknown]
  - Oedema [Unknown]
  - Off label use [Unknown]
